FAERS Safety Report 5423053-0 (Version None)
Quarter: 2007Q3

REPORT INFORMATION
  Report Type: 
  Country: None (occurrence: None)
  Receive Date: 20070821
  Receipt Date: 20070712
  Transmission Date: 20080115
  Serious: Yes (Death, Hospitalization)
  Sender: FDA-Public Use
  Company Number: 2007US001937

PATIENT
  Age: 45 Year
  Sex: Female

DRUGS (2)
  1. PROGRAF [Suspect]
     Indication: LIVER TRANSPLANT
     Dosage: 9 MG, BID
  2. PREDNISONE TAB [Concomitant]

REACTIONS (7)
  - CHOLESTASIS [None]
  - CYTOMEGALOVIRUS INFECTION [None]
  - HEPATITIS C [None]
  - MULTI-ORGAN FAILURE [None]
  - NEUROTOXICITY [None]
  - POLYNEUROPATHY [None]
  - PROGRESSIVE MULTIFOCAL LEUKOENCEPHALOPATHY [None]
